FAERS Safety Report 7051054-8 (Version None)
Quarter: 2010Q4

REPORT INFORMATION
  Report Type: 
  Country: None (occurrence: None)
  Receive Date: 20101018
  Receipt Date: 20101018
  Transmission Date: 20110411
  Serious: No
  Sender: FDA-Public Use
  Company Number: None

PATIENT
  Age: 57 Year
  Sex: Female
  Weight: 51.2565 kg

DRUGS (2)
  1. RESTASIS 0.4 ML/VIAL ALLERGAN [Suspect]
     Indication: DRY EYE
     Dosage: 0.2 M/ 2XDAILY EYE
     Dates: start: 20100910
  2. RESTASIS 0.4 ML/VIAL ALLERGAN [Suspect]
     Indication: DRY EYE
     Dosage: 0.2 M/ 2XDAILY EYE
     Dates: start: 20100920

REACTIONS (4)
  - BALANCE DISORDER [None]
  - DEAFNESS [None]
  - DIZZINESS [None]
  - EUSTACHIAN TUBE DISORDER [None]
